FAERS Safety Report 10064789 (Version 4)
Quarter: 2015Q1

REPORT INFORMATION
  Report Type: Report from Study
  Country: US (occurrence: US)
  Receive Date: 20140408
  Receipt Date: 20150320
  Transmission Date: 20150720
  Serious: Yes (Death, Hospitalization, Other)
  Sender: FDA-Public Use
  Company Number: US-ALEXION PHARMACEUTICALS INC.-A201401048

PATIENT

DRUGS (6)
  1. SOLIRIS [Suspect]
     Active Substance: ECULIZUMAB
     Indication: STEM CELL TRANSPLANT
     Dosage: 900 MG, Q2W
     Route: 042
     Dates: start: 20130611, end: 20140225
  2. CIPROFLOXACIN. [Concomitant]
     Active Substance: CIPROFLOXACIN
     Indication: PROPHYLAXIS
     Dosage: 250 MG, QD
     Route: 065
     Dates: start: 20130926
  3. SOLIRIS [Suspect]
     Active Substance: ECULIZUMAB
     Indication: BONE MARROW TRANSPLANT
     Dosage: 600 MG, QW
     Route: 042
     Dates: start: 20130925, end: 20131023
  4. STEROID [Concomitant]
     Active Substance: UNSPECIFIED INGREDIENT
     Indication: PRODUCT USED FOR UNKNOWN INDICATION
     Dosage: UNK
     Route: 065
  5. SOLIRIS [Suspect]
     Active Substance: ECULIZUMAB
     Indication: OFF LABEL USE
  6. CELLCEPT [Concomitant]
     Active Substance: MYCOPHENOLATE MOFETIL\MYCOPHENOLATE MOFETIL HYDROCHLORIDE
     Indication: PRODUCT USED FOR UNKNOWN INDICATION
     Route: 065

REACTIONS (8)
  - Condition aggravated [Unknown]
  - Pancreatitis [Unknown]
  - Off label use [Unknown]
  - Pneumonia respiratory syncytial viral [Fatal]
  - Respiratory syncytial virus infection [Unknown]
  - Thrombotic microangiopathy [Unknown]
  - Acute respiratory distress syndrome [Fatal]
  - Graft versus host disease [Unknown]

NARRATIVE: CASE EVENT DATE: 20140306
